FAERS Safety Report 6337334-X (Version None)
Quarter: 2009Q3

REPORT INFORMATION
  Report Type: 
  Country: None (occurrence: None)
  Receive Date: 20090828
  Receipt Date: 20090828
  Transmission Date: 20100115
  Serious: Yes (Hospitalization)
  Sender: FDA-Public Use
  Company Number: None

PATIENT
  Age: 70 Year
  Sex: Female
  Weight: 57.1 kg

DRUGS (1)
  1. SUTENT [Suspect]

REACTIONS (1)
  - HYPERBILIRUBINAEMIA [None]
